FAERS Safety Report 7527738-1 (Version None)
Quarter: 2011Q2

REPORT INFORMATION
  Report Type: 
  Country: None (occurrence: None)
  Receive Date: 20110607
  Receipt Date: 20110524
  Transmission Date: 20111010
  Serious: Yes (Hospitalization)
  Sender: FDA-Public Use
  Company Number: CA-JNJFOC-20110600876

PATIENT
  Sex: Female
  Weight: 60 kg

DRUGS (15)
  1. TYLENOL-500 [Concomitant]
     Indication: PREMEDICATION
     Route: 048
  2. INHALERS NOS [Concomitant]
  3. RISEDRONATE SODIUM [Concomitant]
  4. AMLODIPINE [Concomitant]
     Route: 048
  5. TYLENOL (CAPLET) [Concomitant]
     Route: 048
  6. CRESTOR [Concomitant]
  7. ASPIRIN [Concomitant]
     Route: 048
  8. FOLIC ACID [Concomitant]
  9. REMICADE [Suspect]
     Indication: RHEUMATOID ARTHRITIS
     Route: 042
     Dates: start: 20110329
  10. CALCIUM CARBONATE [Concomitant]
     Route: 048
  11. REMICADE [Suspect]
     Route: 042
     Dates: start: 20101012
  12. GLUCOSAMINE [Concomitant]
  13. BENADRYL [Concomitant]
     Indication: PREMEDICATION
  14. ZANTAC [Concomitant]
     Route: 048
  15. VITAMIN D [Concomitant]

REACTIONS (7)
  - ANTIBIOTIC RESISTANT STAPHYLOCOCCUS TEST POSITIVE [None]
  - URTICARIA [None]
  - CHRONIC OBSTRUCTIVE PULMONARY DISEASE [None]
  - SKIN BURNING SENSATION [None]
  - DYSGEUSIA [None]
  - PRURITUS [None]
  - ARTHROPOD BITE [None]
